FAERS Safety Report 4767509-2 (Version None)
Quarter: 2005Q3

REPORT INFORMATION
  Report Type: 
  Country: None (occurrence: None)
  Receive Date: 20050913
  Receipt Date: 20050824
  Transmission Date: 20060218
  Serious: Yes (Hospitalization)
  Sender: FDA-Public Use
  Company Number: JP-SANOFI-SYNTHELABO-F01200501746

PATIENT
  Age: 67 Year
  Sex: Male
  Weight: 70.75 kg

DRUGS (12)
  1. CLOPIDOGREL BISULFATE [Suspect]
     Dosage: 300 MG LOADING DOSE FOLLOWED BY 75 MG/DAY
     Route: 048
     Dates: start: 20050526
  2. LOCHOL [Concomitant]
     Indication: HYPERLIPIDAEMIA
     Dosage: 20 MG
     Route: 048
  3. COVERSYL [Concomitant]
     Indication: HYPERTENSION
     Dosage: 4 MG
     Route: 048
  4. NOVOLIN [Concomitant]
     Indication: DIABETES MELLITUS
     Dosage: 24 IU
     Route: 058
  5. CRAVIT [Concomitant]
     Indication: ANTIBIOTIC LEVEL
     Dosage: 900 MG
     Route: 048
     Dates: start: 20050818
  6. LOXONIN [Concomitant]
     Indication: ANTIPYRESIS
     Route: 048
     Dates: start: 20050818, end: 20050823
  7. BIOFERMIN R [Concomitant]
     Dosage: 9 G
     Route: 048
     Dates: start: 20050823
  8. ASPIRIN [Concomitant]
     Indication: ANTIPLATELET THERAPY
     Dosage: 100 MG
     Route: 048
  9. MAINTATE [Concomitant]
     Indication: HYPERTENSION
     Dosage: 5 MG
     Route: 048
  10. SIGMART [Concomitant]
     Indication: ANGINA UNSTABLE
     Dosage: 45 MG
     Route: 048
  11. KOLANTYL [Concomitant]
     Indication: GASTRITIS
     Dosage: 3 PACK X 3 UNK
     Route: 048
  12. GASTER D [Concomitant]
     Indication: GASTRITIS
     Dosage: 20 MG
     Route: 048

REACTIONS (4)
  - PLEURISY [None]
  - POLLAKIURIA [None]
  - TUBERCULIN TEST POSITIVE [None]
  - TUBERCULOSIS [None]
